FAERS Safety Report 7449837-5 (Version None)
Quarter: 2011Q2

REPORT INFORMATION
  Report Type: 
  Country: None (occurrence: None)
  Receive Date: 20110428
  Receipt Date: 20110428
  Transmission Date: 20111010
  Serious: Yes (Life-Threatening, Hospitalization)
  Sender: FDA-Public Use
  Company Number: None

PATIENT
  Age: 42 Year
  Sex: Female
  Weight: 90.9 kg

DRUGS (1)
  1. METHOTREXATE [Suspect]
     Indication: PSORIATIC ARTHROPATHY
     Dosage: 5 MG TWICE DAILY PO
     Route: 048
     Dates: start: 20030517, end: 20030527

REACTIONS (6)
  - DIARRHOEA [None]
  - ACCIDENTAL OVERDOSE [None]
  - VOMITING [None]
  - STOMATITIS [None]
  - NAUSEA [None]
  - VULVOVAGINAL MYCOTIC INFECTION [None]
